FAERS Safety Report 20087513 (Version 1)
Quarter: 2021Q4

REPORT INFORMATION
  Report Type: Report from Study
  Country: DE (occurrence: DE)
  Receive Date: 20211118
  Receipt Date: 20211118
  Transmission Date: 20220303
  Serious: Yes (Hospitalization)
  Sender: FDA-Public Use
  Company Number: DE-TAKEDA-2016BLT005685

PATIENT
  Age: 21 Year
  Weight: 76.2 kg

DRUGS (20)
  1. ADVATE [Suspect]
     Active Substance: ANTIHEMOPHILIC FACTOR, HUMAN RECOMBINANT
     Indication: Factor VIII deficiency
     Dosage: 6000 IU, UNK
     Route: 042
     Dates: start: 20130429
  2. ADVATE [Suspect]
     Active Substance: ANTIHEMOPHILIC FACTOR, HUMAN RECOMBINANT
     Indication: Factor VIII deficiency
     Dosage: 6000 IU, UNK
     Route: 042
     Dates: start: 20130429
  3. ADVATE [Suspect]
     Active Substance: ANTIHEMOPHILIC FACTOR, HUMAN RECOMBINANT
     Indication: Factor VIII deficiency
     Dosage: 6000 IU, UNK
     Route: 042
     Dates: start: 20130429
  4. ADVATE [Suspect]
     Active Substance: ANTIHEMOPHILIC FACTOR, HUMAN RECOMBINANT
     Indication: Prophylaxis
     Dosage: UNK
     Route: 042
  5. ADVATE [Suspect]
     Active Substance: ANTIHEMOPHILIC FACTOR, HUMAN RECOMBINANT
     Indication: Prophylaxis
     Dosage: UNK
     Route: 042
  6. ADVATE [Suspect]
     Active Substance: ANTIHEMOPHILIC FACTOR, HUMAN RECOMBINANT
     Indication: Prophylaxis
     Dosage: UNK
     Route: 042
  7. ADVATE [Suspect]
     Active Substance: ANTIHEMOPHILIC FACTOR, HUMAN RECOMBINANT
     Indication: Postoperative care
     Dosage: 3000 INTERNATIONAL UNIT
     Route: 042
     Dates: start: 20160504, end: 20160504
  8. ADVATE [Suspect]
     Active Substance: ANTIHEMOPHILIC FACTOR, HUMAN RECOMBINANT
     Indication: Postoperative care
     Dosage: 3000 INTERNATIONAL UNIT
     Route: 042
     Dates: start: 20160504, end: 20160504
  9. ADVATE [Suspect]
     Active Substance: ANTIHEMOPHILIC FACTOR, HUMAN RECOMBINANT
     Indication: Postoperative care
     Dosage: 3000 INTERNATIONAL UNIT
     Route: 042
     Dates: start: 20160504, end: 20160504
  10. ADVATE [Suspect]
     Active Substance: ANTIHEMOPHILIC FACTOR, HUMAN RECOMBINANT
     Indication: Nasal turbinate abnormality
     Dosage: 3000 INTERNATIONAL UNIT, BID
     Route: 042
     Dates: start: 20160505, end: 20160505
  11. ADVATE [Suspect]
     Active Substance: ANTIHEMOPHILIC FACTOR, HUMAN RECOMBINANT
     Indication: Nasal turbinate abnormality
     Dosage: 3000 INTERNATIONAL UNIT, BID
     Route: 042
     Dates: start: 20160505, end: 20160505
  12. ADVATE [Suspect]
     Active Substance: ANTIHEMOPHILIC FACTOR, HUMAN RECOMBINANT
     Indication: Nasal turbinate abnormality
     Dosage: 3000 INTERNATIONAL UNIT, BID
     Route: 042
     Dates: start: 20160505, end: 20160505
  13. ADVATE [Suspect]
     Active Substance: ANTIHEMOPHILIC FACTOR, HUMAN RECOMBINANT
     Dosage: 2000 INTERNATIONAL UNIT, BID
     Route: 042
     Dates: start: 20160506, end: 20160506
  14. ADVATE [Suspect]
     Active Substance: ANTIHEMOPHILIC FACTOR, HUMAN RECOMBINANT
     Dosage: 2000 INTERNATIONAL UNIT, BID
     Route: 042
     Dates: start: 20160506, end: 20160506
  15. ADVATE [Suspect]
     Active Substance: ANTIHEMOPHILIC FACTOR, HUMAN RECOMBINANT
     Dosage: 2000 INTERNATIONAL UNIT, BID
     Route: 042
     Dates: start: 20160506, end: 20160506
  16. ADVATE [Suspect]
     Active Substance: ANTIHEMOPHILIC FACTOR, HUMAN RECOMBINANT
     Dosage: 3000 INTERNATIONAL UNIT, QD
     Route: 042
     Dates: start: 20160507, end: 20160509
  17. ADVATE [Suspect]
     Active Substance: ANTIHEMOPHILIC FACTOR, HUMAN RECOMBINANT
     Dosage: 3000 INTERNATIONAL UNIT, QD
     Route: 042
     Dates: start: 20160507, end: 20160509
  18. ADVATE [Suspect]
     Active Substance: ANTIHEMOPHILIC FACTOR, HUMAN RECOMBINANT
     Dosage: 3000 INTERNATIONAL UNIT, QD
     Route: 042
     Dates: start: 20160507, end: 20160509
  19. PANTOPRAZOLE [Concomitant]
     Active Substance: PANTOPRAZOLE
     Indication: Gastrooesophageal reflux disease
     Dosage: 40 MG, 1X A DAY
     Route: 048
     Dates: start: 20131108
  20. CYKLOKAPRON [Concomitant]
     Active Substance: TRANEXAMIC ACID
     Dosage: 50 MG, UNK
     Route: 048
     Dates: start: 20141215, end: 20141222

REACTIONS (2)
  - Nasal turbinate hypertrophy [Recovered/Resolved]
  - Nasal turbinate abnormality [Recovered/Resolved]

NARRATIVE: CASE EVENT DATE: 20160502
